FAERS Safety Report 24643039 (Version 2)
Quarter: 2024Q4

REPORT INFORMATION
  Report Type: Report from Study
  Country: US (occurrence: US)
  Receive Date: 20241120
  Receipt Date: 20241220
  Transmission Date: 20250115
  Serious: Yes (Other)
  Sender: KYOWA
  Company Number: US-KYOWAKIRIN-2024KK026071

PATIENT

DRUGS (2)
  1. BUROSUMAB [Suspect]
     Active Substance: BUROSUMAB
     Indication: Hypophosphataemic osteomalacia
     Dosage: 20 MG, 1X/2 WEEKS (1 ML (20 MG) UNDER THE SKIN)
     Route: 058
  2. BUROSUMAB [Suspect]
     Active Substance: BUROSUMAB
     Indication: Hypophosphataemic osteomalacia
     Dosage: UNK, 1X/2 WEEKS
     Route: 065
     Dates: start: 20240701

REACTIONS (3)
  - Pneumonia [Unknown]
  - Illness [Unknown]
  - Influenza [Unknown]

NARRATIVE: CASE EVENT DATE: 20241217
